FAERS Safety Report 5239829-9 (Version None)
Quarter: 2007Q1

REPORT INFORMATION
  Report Type: 
  Country: None (occurrence: None)
  Receive Date: 20070214
  Receipt Date: 20070214
  Transmission Date: 20070707
  Serious: Yes (Hospitalization)
  Sender: FDA-Public Use
  Company Number: None

PATIENT
  Age: 74 Year
  Sex: Male
  Weight: 72.1219 kg

DRUGS (17)
  1. SIROLIMUS  1MG [Suspect]
     Dosage: 1 MG Q48 HRS PO
     Route: 048
     Dates: start: 20061124, end: 20070212
  2. ACYCLOVIR [Concomitant]
  3. CLONIDINE [Concomitant]
  4. DILTIAZEM [Concomitant]
  5. SENOKOT [Concomitant]
  6. FUROSEMIDE [Concomitant]
  7. GLIPIZIDE [Concomitant]
  8. HYDRALAZINE HCL [Concomitant]
  9. NOVOLIN 70/30 [Concomitant]
  10. ISOSORBIDE [Concomitant]
  11. METOCLOPRAMIDE [Concomitant]
  12. METOPROLOL SUCCINATE [Concomitant]
  13. PAROXETINE HCL [Concomitant]
  14. POTASSIUM CHLORIDE [Concomitant]
  15. SIMVASTATIN [Concomitant]
  16. TERAZOSIN HCL [Concomitant]
  17. TEGASEROD [Concomitant]

REACTIONS (7)
  - ASTHENIA [None]
  - DECREASED APPETITE [None]
  - GAIT DISTURBANCE [None]
  - MUSCLE CONTRACTIONS INVOLUNTARY [None]
  - PARKINSONIAN REST TREMOR [None]
  - TREMOR [None]
  - WEIGHT DECREASED [None]
